FAERS Safety Report 7564899-2 (Version None)
Quarter: 2011Q2

REPORT INFORMATION
  Report Type: 
  Country: None (occurrence: None)
  Receive Date: 20110622
  Receipt Date: 20110316
  Transmission Date: 20111010
  Serious: Yes (Other)
  Sender: FDA-Public Use
  Company Number: US-MYLANLABS-2011S1002614

PATIENT
  Age: 53 Year
  Sex: Female

DRUGS (2)
  1. CLOZAPINE [Suspect]
     Dates: end: 20110216
  2. CLOZAPINE [Suspect]
     Indication: SCHIZOPHRENIA, UNDIFFERENTIATED TYPE
     Dates: end: 20110216

REACTIONS (1)
  - GRANULOCYTOPENIA [None]
